FAERS Safety Report 5255633-X (Version None)
Quarter: 2007Q1

REPORT INFORMATION
  Report Type: 
  Country: None (occurrence: None)
  Receive Date: 20070305
  Receipt Date: 20070221
  Transmission Date: 20070707
  Serious: Yes (Disabling, Other)
  Sender: FDA-Public Use
  Company Number: CL-PFIZER INC-2007014756

PATIENT
  Sex: Male

DRUGS (1)
  1. PREGABALIN [Suspect]
     Indication: NEURALGIA
     Route: 048

REACTIONS (2)
  - GAIT DISTURBANCE [None]
  - SENSORY LOSS [None]
